FAERS Safety Report 9735434 (Version 1)
Quarter: 2013Q4

REPORT INFORMATION
  Report Type: Spontaneous
  Country: US (occurrence: US)
  Receive Date: 20131206
  Receipt Date: 20131206
  Transmission Date: 20140711
  Serious: No
  Sender: FDA-Public Use
  Company Number: US-GILEAD-2009-0022788

PATIENT
  Age: 65 Year
  Sex: Female

DRUGS (15)
  1. LETAIRIS [Suspect]
     Indication: PULMONARY ARTERIAL HYPERTENSION
     Route: 048
     Dates: start: 20080820
  2. NIFEDICAL [Concomitant]
  3. LIPITOR [Concomitant]
  4. ASA [Concomitant]
  5. PAXIL [Concomitant]
  6. HYDROCORTISONE [Concomitant]
  7. ASACOL [Concomitant]
  8. GLUCOSAMINE [Concomitant]
  9. CHONDROITIN [Concomitant]
  10. METHOTREXATE [Concomitant]
  11. ACIDOPHILUS [Concomitant]
  12. FOLIC ACID [Concomitant]
  13. CALCIUM [Concomitant]
  14. MONI [Concomitant]
  15. ACAI [Concomitant]

REACTIONS (2)
  - Upper respiratory tract congestion [Not Recovered/Not Resolved]
  - Local swelling [Not Recovered/Not Resolved]
